FAERS Safety Report 9714280 (Version 3)
Quarter: 2013Q4

REPORT INFORMATION
  Report Type: Report from Study
  Country: US (occurrence: US)
  Receive Date: 20131126
  Receipt Date: 20131127
  Transmission Date: 20140711
  Serious: Yes (Death, Hospitalization)
  Sender: FDA-Public Use
  Company Number: US-ACTELION-A-NJ2013-91237

PATIENT
  Age: 49 Year
  Sex: Male

DRUGS (2)
  1. TRACLEER [Suspect]
     Indication: PULMONARY ARTERIAL HYPERTENSION
     Dosage: 125 MG, UNK
     Route: 048
     Dates: start: 20130602, end: 20131009
  2. VENTAVIS [Suspect]
     Indication: PULMONARY ARTERIAL HYPERTENSION
     Dosage: 2.5 MCG, 4-6X/DAY
     Route: 055
     Dates: start: 201108, end: 20131111

REACTIONS (3)
  - Renal failure [Fatal]
  - Cardiac arrest [Fatal]
  - Dialysis related complication [Fatal]
